FAERS Safety Report 9371973 (Version 1)
Quarter: 2013Q2

REPORT INFORMATION
  Report Type: Spontaneous
  Country: DK (occurrence: FR)
  Receive Date: 20130627
  Receipt Date: 20130627
  Transmission Date: 20140414
  Serious: Yes (Hospitalization)
  Sender: FDA-Public Use
  Company Number: FR-FRI-1000046214

PATIENT
  Age: 40 Year
  Sex: Female

DRUGS (2)
  1. ESCITALOPRAM [Suspect]
     Dosage: 15 MG
     Dates: start: 20120218, end: 20120318
  2. ANTIHYPERTENSIVES [Concomitant]

REACTIONS (1)
  - Vaginal haemorrhage [Recovered/Resolved]
